FAERS Safety Report 15589380 (Version 2)
Quarter: 2018Q4

REPORT INFORMATION
  Report Type: Report from Study
  Country: None (occurrence: GB)
  Receive Date: 20181106
  Receipt Date: 20181128
  Transmission Date: 20190205
  Serious: Yes (Hospitalization)
  Sender: FDA-Public Use
  Company Number: GB-ABBVIE-18S-167-2545172-00

PATIENT
  Sex: Male
  Weight: 74 kg

DRUGS (1)
  1. CREON [Suspect]
     Active Substance: PANCRELIPASE AMYLASE\PANCRELIPASE LIPASE\PANCRELIPASE PROTEASE
     Indication: PANCREATITIS
     Dosage: 25000-75000U, PRN (50000U WITH MEALS, 25000U WITH SUPPLEMENTS)
     Route: 048
     Dates: start: 201807

REACTIONS (3)
  - Complication associated with device [Unknown]
  - Biliary sepsis [Unknown]
  - Asthenia [Unknown]

NARRATIVE: CASE EVENT DATE: 2018
